FAERS Safety Report 5383462-5 (Version None)
Quarter: 2007Q3

REPORT INFORMATION
  Report Type: 
  Country: None (occurrence: None)
  Receive Date: 20070710
  Receipt Date: 20070705
  Transmission Date: 20080115
  Serious: Yes (Hospitalization)
  Sender: FDA-Public Use
  Company Number: EG-SHR-EG-2007-024957

PATIENT
  Age: 63 Year
  Sex: Male

DRUGS (5)
  1. FLUDARA [Suspect]
     Dosage: 50 MG, 1X/DAY
     Route: 041
     Dates: start: 20070621, end: 20070623
  2. CYCLOPHOSPHAMIDE [Concomitant]
     Dosage: 300/SQUARE METER
     Route: 042
     Dates: start: 20070621, end: 20070623
  3. NEUPOGEN [Concomitant]
     Dosage: 30 MIU, UNK
     Route: 058
     Dates: start: 20070623, end: 20070623
  4. ALLOPURINOL [Concomitant]
     Dosage: 300 MG, 3X/DAY
     Route: 048
     Dates: start: 20070621, end: 20070623
  5. ZOFRAN [Concomitant]
     Route: 042
     Dates: start: 20070621, end: 20070623

REACTIONS (1)
  - CUTANEOUS VASCULITIS [None]
